FAERS Safety Report 20674372 (Version 2)
Quarter: 2022Q2

REPORT INFORMATION
  Report Type: Spontaneous
  Country: US (occurrence: None)
  Receive Date: 20220405
  Receipt Date: 20220504
  Transmission Date: 20220720
  Serious: No
  Sender: FDA-Public Use
  Company Number: 2022A117473

PATIENT
  Sex: Female
  Weight: 54.4 kg

DRUGS (1)
  1. FASENRA [Suspect]
     Active Substance: BENRALIZUMAB
     Indication: Asthma
     Route: 058
     Dates: start: 20211026

REACTIONS (4)
  - Gastroenteritis viral [Recovered/Resolved]
  - Malaise [Unknown]
  - Dyspnoea [Unknown]
  - Wheezing [Unknown]
